FAERS Safety Report 10615015 (Version 1)
Quarter: 2014Q4

REPORT INFORMATION
  Report Type: Spontaneous
  Country: GB (occurrence: GB)
  Receive Date: 20141201
  Receipt Date: 20141201
  Transmission Date: 20150529
  Serious: Yes (Hospitalization, Other)
  Sender: FDA-Public Use
  Company Number: GB-UCBSA-2014020054

PATIENT
  Age: 4 Year
  Sex: Female

DRUGS (1)
  1. KEPPRA [Suspect]
     Active Substance: LEVETIRACETAM
     Indication: EPILEPSY
     Dosage: 4.5 MG, 2X/DAY (BID)

REACTIONS (4)
  - Generalised tonic-clonic seizure [Unknown]
  - Demyelination [Unknown]
  - Cerebellar atrophy [Unknown]
  - Off label use [Unknown]
